FAERS Safety Report 7493982-5 (Version None)
Quarter: 2011Q2

REPORT INFORMATION
  Report Type: 
  Country: None (occurrence: None)
  Receive Date: 20110519
  Receipt Date: 20110519
  Transmission Date: 20111010
  Serious: Yes (Other)
  Sender: FDA-Public Use
  Company Number: None

PATIENT
  Age: 56 Year
  Sex: Female

DRUGS (2)
  1. EVISTA [Suspect]
     Indication: BREAST CANCER
     Dosage: 60 MG 1 TAB QD ORAL (TABLET)
     Route: 048
     Dates: start: 20110311, end: 20110411
  2. EVISTA [Suspect]
     Indication: MENOPAUSAL SYMPTOMS
     Dosage: 60 MG 1 TAB QD ORAL (TABLET)
     Route: 048
     Dates: start: 20110311, end: 20110411

REACTIONS (2)
  - PRODUCT QUALITY ISSUE [None]
  - METRORRHAGIA [None]
